FAERS Safety Report 10543003 (Version 1)
Quarter: 2014Q4

REPORT INFORMATION
  Report Type: Spontaneous
  Country: CL (occurrence: None)
  Receive Date: 20141024
  Receipt Date: 20141024
  Transmission Date: 20150529
  Serious: Yes (Disabling)
  Sender: FDA-Public Use
  Company Number: None

PATIENT
  Age: 8 Year
  Sex: Male
  Weight: 24 kg

DRUGS (2)
  1. SINGULAIR [Suspect]
     Active Substance: MONTELUKAST SODIUM
     Indication: RHINITIS ALLERGIC
     Dosage: 1 GRANULAR DOSE PER DAY, TAKEN BY MOUTH
     Dates: start: 20080430, end: 20140325
  2. SINGULAIR [Suspect]
     Active Substance: MONTELUKAST SODIUM
     Indication: DRUG DOSE OMISSION
     Dosage: 1 GRANULAR DOSE PER DAY, TAKEN BY MOUTH
     Dates: start: 20080430, end: 20140325

REACTIONS (13)
  - Somnambulism [None]
  - Enuresis [None]
  - Condition aggravated [None]
  - Diarrhoea [None]
  - Irritability [None]
  - Sleep terror [None]
  - Insomnia [None]
  - Abnormal dreams [None]
  - Impulsive behaviour [None]
  - Anxiety [None]
  - Depression [None]
  - Abdominal pain [None]
  - Disturbance in attention [None]

NARRATIVE: CASE EVENT DATE: 20140325
